FAERS Safety Report 4801837-7 (Version None)
Quarter: 2005Q4

REPORT INFORMATION
  Report Type: 
  Country: None (occurrence: None)
  Receive Date: 20051011
  Receipt Date: 20050923
  Transmission Date: 20060501
  Serious: Yes (Hospitalization)
  Sender: FDA-Public Use
  Company Number: 2005001627

PATIENT
  Age: 85 Year
  Sex: Male

DRUGS (6)
  1. TARCEVA [Suspect]
     Indication: LUNG NEOPLASM MALIGNANT
     Dosage: TREATMENT STOPPED SEVERAL TIMES DUE TO AES (DATES NOT PROVIDED)
     Dates: start: 20050501
  2. PROPAFENONE HCL [Concomitant]
  3. LIPITOR [Concomitant]
  4. NIACIN [Concomitant]
  5. ACETYLSALICYLIC ACID SRT [Concomitant]
  6. SOTALOL HCL [Concomitant]

REACTIONS (10)
  - ASTHENIA [None]
  - ATRIAL FIBRILLATION [None]
  - ATRIAL FLUTTER [None]
  - CHEST PAIN [None]
  - COUGH [None]
  - DRUG TOXICITY [None]
  - DYSPNOEA [None]
  - FATIGUE [None]
  - MALAISE [None]
  - RASH [None]
